FAERS Safety Report 8154137-4 (Version None)
Quarter: 2012Q1

REPORT INFORMATION
  Report Type: 
  Country: None (occurrence: None)
  Receive Date: 20120221
  Receipt Date: 20120214
  Transmission Date: 20120608
  Serious: Yes (Hospitalization)
  Sender: FDA-Public Use
  Company Number: CA-B.I. PHARMACEUTICALS,INC./RIDGEFIELD-2012-CN-00305CN

PATIENT
  Age: 75 Year
  Sex: Male
  Weight: 81.65 kg

DRUGS (5)
  1. BISOPROLOL FUMARATE [Concomitant]
     Route: 048
  2. SUMATRIPTAN [Concomitant]
     Route: 058
  3. PRADAXA [Suspect]
     Dosage: 300 MG
     Route: 048
  4. CITALOPRAM HYDROBROMIDE [Concomitant]
     Route: 048
  5. FIORINAL [Concomitant]
     Route: 065

REACTIONS (8)
  - NAUSEA [None]
  - NEUTROPHIL COUNT DECREASED [None]
  - PARAESTHESIA [None]
  - WHITE BLOOD CELL COUNT DECREASED [None]
  - ASTHENIA [None]
  - PERIPHERAL COLDNESS [None]
  - CONFUSIONAL STATE [None]
  - PYREXIA [None]
